FAERS Safety Report 9002287 (Version 4)
Quarter: 2013Q2

REPORT INFORMATION
  Report Type: Spontaneous
  Country: JP (occurrence: JP)
  Receive Date: 20130107
  Receipt Date: 20130409
  Transmission Date: 20140414
  Serious: Yes (Other)
  Sender: FDA-Public Use
  Company Number: JP-PFIZER INC-2013002746

PATIENT
  Age: 52 Year
  Sex: Male

DRUGS (33)
  1. ZYVOX [Suspect]
     Indication: STAPHYLOCOCCAL INFECTION
     Dosage: 600 MG, 1X/DAY
     Route: 041
     Dates: start: 20121225, end: 20121225
  2. ZYVOX [Suspect]
     Dosage: 600 MG, 2X/DAY
     Route: 041
     Dates: start: 20121226, end: 20121228
  3. ZYVOX [Suspect]
     Dosage: 600 MG, 1X/DAY
     Route: 041
     Dates: start: 20130218, end: 20130218
  4. ZYVOX [Suspect]
     Dosage: 600 MG, 2X/DAY
     Route: 041
     Dates: start: 20130219, end: 20130226
  5. BISOLVON [Concomitant]
     Dosage: 4 MG, 3X/DAY AFTER EACH MEAL
     Route: 048
  6. MUCOSOLVAN [Concomitant]
     Dosage: 15 MG, 3X/DAY AFTER EACH MEAL
     Route: 048
  7. WARFARIN [Concomitant]
     Dosage: 1.75 MG, 1X/DAY AFTER DINNER
     Route: 048
     Dates: end: 20130228
  8. WARFARIN [Concomitant]
     Dosage: 1.75 MG, 1X/DAY, AFTER DINNER
     Route: 048
     Dates: start: 20130308
  9. TAKEPRON [Concomitant]
     Dosage: 15 MG, 1X/DAY, AFTER BREAKFAST
     Route: 048
  10. ALOSENN [Concomitant]
     Dosage: 0.5 G, 1X/DAY, AFTER DINNER
     Route: 048
  11. MEILAX [Concomitant]
     Dosage: 1 MG, 1X/DAY AFTER DINNER
     Route: 048
     Dates: start: 20121225, end: 20130328
  12. CALONAL [Concomitant]
     Dosage: 300 MG, 3X/DAY AFTER EACH MEAL
     Route: 048
     Dates: end: 20130328
  13. SOLITA-T 3G [Concomitant]
     Dosage: 4 G, 3X/DAY, AFTER LUNCH AND DINNER, BEFORE BEDTIME
     Route: 048
     Dates: start: 20130213, end: 20130218
  14. SOLITA-T 3G [Concomitant]
     Dosage: 4 G, 3X/DAY, AFTER LUNCH AND DINNER, BEFORE BEDTIME
     Route: 048
     Dates: start: 20130302, end: 20130329
  15. METLIGINE [Concomitant]
     Dosage: 2 MG, 2X/DAY, AFTER BREAKFAST AND DINNER
     Route: 048
     Dates: end: 20130228
  16. METLIGINE [Concomitant]
     Dosage: 2 MG, 1X/DAY, AFTER BREAKFAST
     Route: 048
     Dates: start: 20130301, end: 20130307
  17. TARGOCID [Concomitant]
     Dosage: 200 MG, 2X/DAY
     Route: 041
     Dates: start: 20130204, end: 20130217
  18. TARGOCID [Concomitant]
     Dosage: 200 MG, 1X/DAY
     Route: 041
     Dates: start: 20130218, end: 20130218
  19. DALACIN-S [Concomitant]
     Dosage: 600 MG, 2X/DAY
     Route: 041
     Dates: start: 20130216, end: 20130217
  20. DALACIN-S [Concomitant]
     Dosage: 600 MG, 1X/DAY
     Route: 041
     Dates: start: 20130218, end: 20130218
  21. VANCOMYCIN [Concomitant]
     Dosage: 3 G, 1X/DAY
     Route: 041
     Dates: start: 20121218, end: 20121225
  22. VANCOMYCIN [Concomitant]
     Dosage: 3 G, 1X/DAY
     Route: 041
     Dates: start: 20121229
  23. METABOLIN G [Concomitant]
     Dosage: 10 MG, 1X/DAY
     Route: 041
     Dates: start: 20121218, end: 20121230
  24. BISULASE [Concomitant]
     Dosage: 10 MG, 1X/DAY
     Route: 041
     Dates: start: 20121218, end: 20121230
  25. PENTCILLIN [Concomitant]
     Dosage: 4 G, 1X/DAY
     Route: 041
     Dates: start: 20121218, end: 20121218
  26. PENTCILLIN [Concomitant]
     Dosage: 6 G, 1X/DAY
     Route: 041
     Dates: start: 20121219, end: 20121222
  27. PENTCILLIN [Concomitant]
     Dosage: 2 G, 1X/DAY
     Route: 041
     Dates: start: 20121223, end: 20121223
  28. TOBRACIN [Concomitant]
     Dosage: 180 G, 1X/DAY
     Route: 041
     Dates: start: 20121220
  29. MODACIN [Concomitant]
     Dosage: 2 G, 1X/DAY
     Route: 041
     Dates: start: 20121223, end: 20121223
  30. MODACIN [Concomitant]
     Dosage: 3 G, 1X/DAY
     Route: 041
     Dates: start: 20121224, end: 20121224
  31. MODACIN [Concomitant]
     Dosage: 4 G, 1X/DAY
     Route: 041
     Dates: start: 20121225
  32. ASPARTATE POTASSIUM [Concomitant]
     Dosage: 20 MEQ, 1X/DAY
     Route: 041
     Dates: start: 20121225, end: 20121225
  33. ASPARTATE POTASSIUM [Concomitant]
     Dosage: 10 MEQ, 1X/DAY
     Route: 041
     Dates: start: 20121226, end: 20121227

REACTIONS (2)
  - Blood pressure decreased [Recovered/Resolved]
  - Liver disorder [Not Recovered/Not Resolved]
